FAERS Safety Report 6037816-4 (Version None)
Quarter: 2009Q1

REPORT INFORMATION
  Report Type: 
  Country: None (occurrence: None)
  Receive Date: 20090113
  Receipt Date: 20090105
  Transmission Date: 20090719
  Serious: Yes (Hospitalization, Other)
  Sender: FDA-Public Use
  Company Number: DEP_00180_2008

PATIENT
  Age: 74 Year
  Sex: Female

DRUGS (2)
  1. METFORMIN HCL [Suspect]
     Indication: DIABETES MELLITUS
     Dosage: 750 MG 1X/8 HOURS
  2. GLYBURIDE [Concomitant]

REACTIONS (21)
  - ATRIAL FIBRILLATION [None]
  - BLINDNESS [None]
  - BLOOD CHLORIDE DECREASED [None]
  - BLOOD GLUCOSE INCREASED [None]
  - BLOOD SODIUM INCREASED [None]
  - DEHYDRATION [None]
  - DISORIENTATION [None]
  - DRUG TOXICITY [None]
  - ELECTROCARDIOGRAM REPOLARISATION ABNORMALITY [None]
  - GASTROINTESTINAL HYPOMOTILITY [None]
  - HAEMOGLOBIN DECREASED [None]
  - HEART RATE INCREASED [None]
  - HYPERLACTACIDAEMIA [None]
  - HYPOKALAEMIA [None]
  - METABOLIC ACIDOSIS [None]
  - MUCOUS STOOLS [None]
  - PANCREATITIS ACUTE [None]
  - PLATELET COUNT INCREASED [None]
  - RECTAL ADENOMA [None]
  - RENAL FAILURE ACUTE [None]
  - RESPIRATORY RATE INCREASED [None]
